FAERS Safety Report 10562684 (Version 1)
Quarter: 2014Q4

REPORT INFORMATION
  Report Type: Spontaneous
  Country: US (occurrence: None)
  Receive Date: 20141103
  Receipt Date: 20141103
  Transmission Date: 20150529
  Serious: Yes (Hospitalization)
  Sender: FDA-Public Use
  Company Number: None

PATIENT
  Age: 27 Year
  Sex: Female
  Weight: 54.89 kg

DRUGS (1)
  1. BACTRIM DS [Suspect]
     Active Substance: SULFAMETHOXAZOLE\TRIMETHOPRIM
     Indication: SKIN INFECTION
     Dosage: 2 TABLETS?BID?ORAL
     Route: 048
     Dates: start: 20140907, end: 20140910

REACTIONS (6)
  - Lymphadenopathy [None]
  - Rash [None]
  - Fatigue [None]
  - Pyrexia [None]
  - Chills [None]
  - Nausea [None]

NARRATIVE: CASE EVENT DATE: 20140910
